FAERS Safety Report 16704873 (Version 8)
Quarter: 2020Q1

REPORT INFORMATION
  Report Type: Report from Study
  Country: US (occurrence: CN)
  Receive Date: 20190814
  Receipt Date: 20200313
  Transmission Date: 20200409
  Serious: Yes (Hospitalization)
  Sender: FDA-Public Use
  Company Number: CN-ELI_LILLY_AND_COMPANY-CN201908002624

PATIENT
  Age: 50 Year
  Sex: Female
  Weight: 52 kg

DRUGS (40)
  1. DEXAMETHASONE. [Concomitant]
     Active Substance: DEXAMETHASONE
     Indication: SKIN REACTION
     Dosage: 4 MG, UNKNOWN
     Route: 065
     Dates: start: 20190711, end: 20190713
  2. DOLASETRON MESYLATE [Concomitant]
     Active Substance: DOLASETRON MESYLATE
     Indication: ANTIEMETIC SUPPORTIVE CARE
     Dosage: 25 MG, UNKNOWN
     Route: 065
     Dates: start: 20190711, end: 20190713
  3. DEXTROSE + SODIUM CHLORIDE [Concomitant]
     Indication: NUTRITIONAL SUPPLEMENTATION
  4. POLYENE PHOSPHATIDYLCHOLINE [Concomitant]
     Active Substance: PHOSPHOLIPID
     Indication: ALANINE AMINOTRANSFERASE INCREASED
  5. ILAPRAZOLE [Concomitant]
     Active Substance: ILAPRAZOLE
     Indication: PROPHYLAXIS
     Dosage: UNK UNK, UNKNOWN
     Route: 065
  6. FRUCTOSE [Concomitant]
     Active Substance: FRUCTOSE
     Indication: DEHYDRATION
     Dosage: UNK UNK, UNKNOWN
     Route: 065
  7. DOMPERIDONE [Concomitant]
     Active Substance: DOMPERIDONE
     Indication: PROPHYLAXIS
     Dosage: UNK UNK, UNKNOWN
     Route: 065
  8. POTASSIUM ASPARTATE [Concomitant]
     Active Substance: POTASSIUM ASPARTATE
     Indication: DEHYDRATION
     Dosage: UNK UNK, UNKNOWN
     Route: 065
  9. ALBUMIN HUMAN [Concomitant]
     Active Substance: ALBUMIN HUMAN
     Indication: UNHEALTHY DIET
  10. CYANOCOBALAMIN. [Concomitant]
     Active Substance: CYANOCOBALAMIN
     Indication: CHEMOTHERAPY TOXICITY ATTENUATION
     Dosage: 1 MG, UNKNOWN
     Route: 065
     Dates: start: 20190711, end: 20190711
  11. DEXTROSE + SODIUM CHLORIDE [Concomitant]
     Indication: DEHYDRATION
     Dosage: 500 ML, UNKNOWN
     Route: 065
     Dates: start: 20190712, end: 20190715
  12. GLUTATHIONE [Concomitant]
     Active Substance: GLUTATHIONE
     Indication: PROPHYLAXIS
     Dosage: UNK UNK, UNKNOWN
     Route: 065
  13. ALBUMIN HUMAN [Concomitant]
     Active Substance: ALBUMIN HUMAN
     Indication: ANAEMIA
  14. OLANZAPINE. [Concomitant]
     Active Substance: OLANZAPINE
     Indication: COMMUNICATION DISORDER
  15. FOLIC ACID. [Concomitant]
     Active Substance: FOLIC ACID
     Indication: PRODUCT USED FOR UNKNOWN INDICATION
     Dosage: 0.4 MG, UNKNOWN
     Route: 065
     Dates: start: 20190623
  16. APREPITANT. [Concomitant]
     Active Substance: APREPITANT
     Indication: ANTIEMETIC SUPPORTIVE CARE
     Dosage: 125 MG, UNKNOWN
     Route: 065
     Dates: start: 20190712, end: 20190714
  17. APREPITANT. [Concomitant]
     Active Substance: APREPITANT
     Dosage: 80 MG, UNKNOWN
     Route: 065
     Dates: start: 20190713, end: 20190714
  18. POLYENE PHOSPHATIDYLCHOLINE [Concomitant]
     Active Substance: PHOSPHOLIPID
     Indication: PROPHYLAXIS
     Dosage: 30 MG, UNKNOWN
     Route: 065
     Dates: start: 20190713, end: 20190715
  19. IMRECOXIB. [Concomitant]
     Active Substance: IMRECOXIB
     Indication: ABDOMINAL PAIN
     Dosage: UNK UNK, UNKNOWN
     Route: 065
  20. METHYLPREDNISOLONE SODIUM SUCCINATE. [Concomitant]
     Active Substance: METHYLPREDNISOLONE SODIUM SUCCINATE
     Indication: AUTOIMMUNE HEPATITIS
  21. ESOMEPRAZOLE SODIUM. [Concomitant]
     Active Substance: ESOMEPRAZOLE SODIUM
     Indication: PROPHYLAXIS
     Dosage: 40 MG, UNKNOWN
     Route: 065
     Dates: start: 20190711, end: 20190715
  22. ADEMETIONINE 1,4-BUTANEDISULFONATE [Concomitant]
     Indication: PROPHYLAXIS
     Dosage: UNK UNK, UNKNOWN
     Route: 065
     Dates: start: 20190711, end: 20190712
  23. MANNITOL. [Concomitant]
     Active Substance: MANNITOL
     Indication: DEHYDRATION
     Dosage: UNK UNK, UNKNOWN
     Route: 065
     Dates: start: 20190830
  24. POTASSIUM CHLORIDE. [Concomitant]
     Active Substance: POTASSIUM CHLORIDE
     Indication: DEHYDRATION
     Dosage: UNK UNK, UNKNOWN
     Route: 065
  25. GRANULOCYTE COLONY STIMULATING FACTOR [Concomitant]
     Active Substance: GRANULOCYTE COLONY-STIMULATING FACTOR NOS
     Indication: WHITE BLOOD CELL COUNT DECREASED
     Dosage: UNK UNK, UNKNOWN
     Route: 065
  26. APREPITANT. [Concomitant]
     Active Substance: APREPITANT
     Dosage: UNK
  27. ILAPRAZOLE [Concomitant]
     Active Substance: ILAPRAZOLE
     Indication: PROPHYLAXIS
  28. GRANULOCYTE COLONY STIMULATING FACTOR [Concomitant]
     Active Substance: GRANULOCYTE COLONY-STIMULATING FACTOR NOS
     Indication: NEUTROPHIL COUNT DECREASED
  29. PEMETREXED. [Suspect]
     Active Substance: PEMETREXED
     Indication: NON-SMALL CELL LUNG CANCER
     Dosage: 500 MG/M2, CYCLICAL
     Route: 042
     Dates: start: 20190712
  30. AMINO ACID TA [Concomitant]
     Indication: NUTRITIONAL SUPPLEMENTATION
     Dosage: UNK UNK, UNKNOWN
     Route: 065
  31. TROPISETRON HYDROCHLORIDE [Concomitant]
     Active Substance: TROPISETRON HYDROCHLORIDE
     Indication: ANTIEMETIC SUPPORTIVE CARE
     Dosage: UNK UNK, UNKNOWN
     Route: 065
  32. POLYENE PHOSPHATIDYLCHOLINE [Concomitant]
     Active Substance: PHOSPHOLIPID
     Indication: ASPARTATE AMINOTRANSFERASE INCREASED
  33. GLYCERIN [GLYCEROL] [Concomitant]
     Indication: CONSTIPATION
     Dosage: UNK UNK, UNKNOWN
     Route: 065
  34. ALBUMIN HUMAN [Concomitant]
     Active Substance: ALBUMIN HUMAN
     Indication: ANAEMIA
     Dosage: UNK UNK, UNKNOWN
     Route: 065
  35. ALBUMIN HUMAN [Concomitant]
     Active Substance: ALBUMIN HUMAN
     Indication: HYPOALBUMINAEMIA
  36. MANNITOL. [Concomitant]
     Active Substance: MANNITOL
     Indication: DEHYDRATION
     Dosage: 25 G, UNKNOWN
     Route: 065
     Dates: start: 20190711, end: 20190715
  37. POLAPREZINC [Concomitant]
     Active Substance: POLAPREZINC
     Indication: PROPHYLAXIS
     Dosage: 75 MG, UNKNOWN
     Route: 065
     Dates: start: 20190711, end: 20190715
  38. SOFALCONE [Concomitant]
     Active Substance: SOFALCONE
     Indication: PROPHYLAXIS
     Dosage: UNK UNK, UNKNOWN
     Route: 065
  39. PANTOPRAZOLE SODIUM. [Concomitant]
     Active Substance: PANTOPRAZOLE SODIUM
     Indication: PROPHYLAXIS
     Dosage: UNK UNK, UNKNOWN
     Route: 065
  40. LACTULOSE. [Concomitant]
     Active Substance: LACTULOSE
     Indication: CONSTIPATION
     Dosage: UNK UNK, UNKNOWN
     Route: 065

REACTIONS (2)
  - Dizziness [Recovered/Resolved]
  - Nausea [Recovered/Resolved]

NARRATIVE: CASE EVENT DATE: 20190719
